FAERS Safety Report 12860086 (Version 5)
Quarter: 2017Q3

REPORT INFORMATION
  Report Type: Report from Study
  Country: CN (occurrence: CN)
  Receive Date: 20161019
  Receipt Date: 20170830
  Transmission Date: 20171127
  Serious: Yes (Death, Hospitalization, Disabling, Other)
  Sender: FDA-Public Use
  Company Number: CN-ASTELLAS-2016JP005085AA

PATIENT
  Age: 86 Year
  Sex: Male

DRUGS (11)
  1. METFORMIN HYDROCHLORIDE. [Concomitant]
     Active Substance: METFORMIN HYDROCHLORIDE
     Indication: DIABETES MELLITUS
     Dosage: 0.5 G, TWICE DAILY
     Route: 048
     Dates: start: 201401
  2. UNKNOWNDRUG [Concomitant]
     Active Substance: UNSPECIFIED INGREDIENT
     Indication: DIABETES MELLITUS
     Dosage: 10 U (BEFORE BREAKFAST), 4 U (BEFORE DINNER), TWICE DAILY
     Route: 030
     Dates: start: 20160630, end: 20161001
  3. ENZALUTAMIDE [Suspect]
     Active Substance: ENZALUTAMIDE
     Indication: HORMONE-REFRACTORY PROSTATE CANCER
     Route: 048
     Dates: start: 20150114, end: 20161001
  4. NIFEDIPINE. [Concomitant]
     Active Substance: NIFEDIPINE
     Indication: HYPERTENSION
     Route: 048
     Dates: start: 201402
  5. HYDROCHLOROTHIAZIDE. [Concomitant]
     Active Substance: HYDROCHLOROTHIAZIDE
     Indication: HYPERTENSION
     Dosage: 150MG/12.5MG, ONCE DAILY
     Route: 048
     Dates: start: 201401
  6. GLUTATHIONE COMPOUND [Concomitant]
     Indication: ACUTE KIDNEY INJURY
     Route: 042
     Dates: start: 20160323, end: 20160326
  7. DIPROPHYLLINE [Concomitant]
     Active Substance: DYPHYLLINE
     Indication: TACHYPNOEA
     Dosage: 0.25 G X 1
     Route: 042
     Dates: start: 20160325, end: 20160325
  8. GLIMEPIRIDE. [Concomitant]
     Active Substance: GLIMEPIRIDE
     Indication: DIABETES MELLITUS
     Route: 048
     Dates: start: 201401
  9. ACARBOSE. [Concomitant]
     Active Substance: ACARBOSE
     Indication: DIABETES MELLITUS
     Route: 048
     Dates: start: 201401
  10. JINSHUIBAO [Concomitant]
     Indication: ACUTE KIDNEY INJURY
     Dosage: 0.99 G, THRICE DAILY
     Route: 048
     Dates: start: 20160323, end: 20160326
  11. SPIRONOLACTONE. [Concomitant]
     Active Substance: SPIRONOLACTONE
     Indication: POLYURIA
     Route: 048
     Dates: start: 20160323, end: 20160324

REACTIONS (6)
  - Acute kidney injury [Recovered/Resolved]
  - Tibia fracture [Recovered/Resolved]
  - Lung infection [Fatal]
  - Cardiac failure [Recovered/Resolved]
  - Fibula fracture [Recovered/Resolved]
  - Lung cancer metastatic [Fatal]

NARRATIVE: CASE EVENT DATE: 20160318
